FAERS Safety Report 4364319-5 (Version None)
Quarter: 2004Q2

REPORT INFORMATION
  Report Type: 
  Country: None (occurrence: None)
  Receive Date: 20040525
  Receipt Date: 20030610
  Transmission Date: 20050107
  Serious: No
  Sender: FDA-Public Use
  Company Number: US-BRISTOL-MYERS SQUIBB COMPANY-12298097

PATIENT
  Age: 51 Year
  Sex: Male
  Weight: 107 kg

DRUGS (3)
  1. CYTOXAN [Suspect]
     Indication: RENAL DISORDER
     Route: 048
  2. ZOLOFT [Concomitant]
  3. CELEXA [Concomitant]

REACTIONS (1)
  - HYPERGLYCAEMIA [None]
